FAERS Safety Report 9893063 (Version 1)
Quarter: 2014Q1

REPORT INFORMATION
  Report Type: Report from Study
  Country: US (occurrence: US)
  Receive Date: 20140213
  Receipt Date: 20140213
  Transmission Date: 20141002
  Serious: Yes (Other)
  Sender: FDA-Public Use
  Company Number: US-ROCHE-1321675

PATIENT
  Sex: Female
  Weight: 171.4 kg

DRUGS (27)
  1. AVASTIN [Suspect]
     Indication: OVARIAN CANCER
     Route: 042
     Dates: start: 20110225
  2. DOXIL (UNITED STATES) [Concomitant]
     Route: 065
  3. DEXAMETHASONE [Concomitant]
     Route: 065
  4. PRILOSEC [Concomitant]
     Route: 048
  5. IBUPROFEN [Concomitant]
     Dosage: AS NEEDED
     Route: 048
  6. DOCUSATE SODIUM [Concomitant]
     Route: 048
  7. LORAZEPAM [Concomitant]
     Dosage: 1-2 TABS Q HRS AS NEEDED
     Route: 048
  8. BENICAR [Concomitant]
     Route: 048
  9. AMLODIPINE BESYLATE [Concomitant]
     Dosage: TAKE 0.5 DAILY
     Route: 048
  10. AMLODIPINE BESYLATE [Concomitant]
     Route: 048
  11. MUCINEX D [Concomitant]
     Route: 048
  12. ZYRTEC [Concomitant]
     Route: 048
  13. LEVAQUIN [Concomitant]
     Indication: INFECTION
     Route: 048
     Dates: start: 20110526, end: 20110601
  14. GEMCITABINE [Concomitant]
     Route: 065
  15. GEMCITABINE [Concomitant]
     Route: 065
  16. GEMCITABINE [Concomitant]
     Route: 065
  17. CARBOPLATIN [Concomitant]
     Route: 065
  18. CARBOPLATIN [Concomitant]
     Route: 065
  19. TYLENOL [Concomitant]
     Route: 048
  20. PROCHLORPERAZINE MALEATE [Concomitant]
     Dosage: TAKE 1 EVERY 4-6 HOURS AS NEEDED FOR NAUSEA
     Route: 048
  21. TRIAMCINOLONE [Concomitant]
     Dosage: 1 APPLCATION TOPICAL BID
     Route: 061
  22. ACETAMINOPHEN [Concomitant]
     Dosage: 1-2 TABLETS EVERY 4 HOURS AS NEEDED
     Route: 048
  23. MACRODANTIN [Concomitant]
     Dosage: AT HS
     Route: 048
  24. BELLADONNA/OPIUM, POWDERED [Concomitant]
     Dosage: TAKE ONE QID PRN
     Route: 054
  25. ETOPOSIDE [Concomitant]
     Dosage: EVERY OTHER DAY FOR 21 DAYS
     Route: 048
  26. ETOPOSIDE [Concomitant]
     Dosage: ALTERNATE DAYS (EVERY OTHER DAY)
     Route: 048
  27. DOCETAXEL [Concomitant]

REACTIONS (14)
  - Haematuria [Unknown]
  - Anaemia [Unknown]
  - Vaginal haemorrhage [Unknown]
  - Bladder disorder [Unknown]
  - Thrombocytopenia [Unknown]
  - Nausea [Unknown]
  - Decreased appetite [Unknown]
  - Alopecia [Unknown]
  - Fatigue [Unknown]
  - Paraesthesia [Unknown]
  - Back pain [Unknown]
  - Off label use [Unknown]
  - Metastases to liver [Unknown]
  - Arthralgia [Unknown]
